FAERS Safety Report 12637368 (Version 1)
Quarter: 2016Q3

REPORT INFORMATION
  Report Type: Spontaneous
  Country: US (occurrence: US)
  Receive Date: 20160809
  Receipt Date: 20160809
  Transmission Date: 20161109
  Serious: No
  Sender: FDA-Public Use
  Company Number: US-BEH-2016058363

PATIENT
  Sex: Female
  Weight: 90 kg

DRUGS (22)
  1. NORMAL SALINE [Concomitant]
     Active Substance: SODIUM CHLORIDE
  2. PRIVIGEN [Suspect]
     Active Substance: HUMAN IMMUNOGLOBULIN G
     Indication: OPTIC NEURITIS
     Route: 042
  3. CELLCEPT [Concomitant]
     Active Substance: MYCOPHENOLATE MOFETIL\MYCOPHENOLATE MOFETIL HYDROCHLORIDE
  4. SODIUM CHLORIDE. [Concomitant]
     Active Substance: SODIUM CHLORIDE
  5. TROKENDI XR [Concomitant]
     Active Substance: TOPIRAMATE
     Dosage: CAP ER 24 H
  6. MIRALAX POWDER PACKET [Concomitant]
  7. FROVA [Concomitant]
     Active Substance: FROVATRIPTAN SUCCINATE
  8. MULTIVITAMIN [Concomitant]
     Active Substance: VITAMINS
  9. DIPHENHYDRAMINE. [Concomitant]
     Active Substance: DIPHENHYDRAMINE
  10. SOLU-MEDROL [Concomitant]
     Active Substance: METHYLPREDNISOLONE SODIUM SUCCINATE
  11. MAXALT-MLT [Concomitant]
     Active Substance: RIZATRIPTAN BENZOATE
  12. IBUPROFEN. [Concomitant]
     Active Substance: IBUPROFEN
  13. PRIVIGEN [Suspect]
     Active Substance: HUMAN IMMUNOGLOBULIN G
     Dosage: AS DIRECTED
     Route: 042
     Dates: start: 20110122
  14. LIDOCAINE/PRILOCAINE [Concomitant]
     Active Substance: LIDOCAINE\PRILOCAINE
  15. VITAMIN D3 [Concomitant]
     Active Substance: CHOLECALCIFEROL
     Dosage: SOFTGEL
  16. EPI-PEN AUTOINJECTOR [Concomitant]
  17. PRIVIGEN [Suspect]
     Active Substance: HUMAN IMMUNOGLOBULIN G
     Route: 042
  18. HEPARIN [Concomitant]
     Active Substance: HEPARIN SODIUM
     Dosage: 100 UNITS/ML
  19. ADDERALL [Concomitant]
     Active Substance: AMPHETAMINE ASPARTATE\AMPHETAMINE SULFATE\DEXTROAMPHETAMINE SACCHARATE\DEXTROAMPHETAMINE SULFATE
  20. ZONEGRAN [Concomitant]
     Active Substance: ZONISAMIDE
  21. OMEPRAZOLE DR [Concomitant]
     Active Substance: OMEPRAZOLE
  22. ACETAMINOPHEN. [Concomitant]
     Active Substance: ACETAMINOPHEN

REACTIONS (2)
  - Cough [Unknown]
  - Headache [Unknown]
